FAERS Safety Report 12555406 (Version 1)
Quarter: 2016Q3

REPORT INFORMATION
  Report Type: Spontaneous
  Country: US (occurrence: None)
  Receive Date: 20160713
  Receipt Date: 20160713
  Transmission Date: 20161109
  Serious: Yes (Death, Life-Threatening, Hospitalization, Disabling)
  Sender: FDA-Public Use
  Company Number: None

PATIENT
  Age: 90 Year
  Sex: Male
  Weight: 58.97 kg

DRUGS (5)
  1. CURCUMIN [Concomitant]
     Active Substance: CURCUMIN
  2. VITAMIN E [Concomitant]
     Active Substance: .ALPHA.-TOCOPHEROL
  3. XOFIGO [Suspect]
     Active Substance: RADIUM RA-223 DICHLORIDE
     Indication: HORMONE-REFRACTORY PROSTATE CANCER
     Dosage: 1/MONTH IV X 6 MON INTO A VEIN
     Route: 042
  4. ASA [Concomitant]
     Active Substance: ASPIRIN
  5. A-LIPOIC ACID [Concomitant]

REACTIONS (10)
  - Acute kidney injury [None]
  - Cyanosis [None]
  - Nausea [None]
  - Systemic inflammatory response syndrome [None]
  - Anaemia [None]
  - Acute respiratory distress syndrome [None]
  - Vasoconstriction [None]
  - Abdominal discomfort [None]
  - Decreased appetite [None]
  - Diarrhoea [None]

NARRATIVE: CASE EVENT DATE: 20160701
